FAERS Safety Report 4356007-6 (Version None)
Quarter: 2004Q2

REPORT INFORMATION
  Report Type: 
  Country: None (occurrence: None)
  Receive Date: 20040505
  Receipt Date: 20040422
  Transmission Date: 20050107
  Serious: Yes (Other)
  Sender: FDA-Public Use
  Company Number: 200411986BCC

PATIENT
  Age: 74 Year
  Sex: Female
  Weight: 81.6475 kg

DRUGS (1)
  1. ALEVE [Suspect]
     Dosage: 2640 MG, TOTAL DIALY, ORAL
     Route: 048
     Dates: start: 20020101, end: 20040421

REACTIONS (3)
  - ATRIAL FIBRILLATION [None]
  - DEMENTIA ALZHEIMER'S TYPE [None]
  - MEDICATION ERROR [None]
